FAERS Safety Report 6103184-2 (Version None)
Quarter: 2009Q1

REPORT INFORMATION
  Report Type: 
  Country: None (occurrence: None)
  Receive Date: 20090227
  Receipt Date: 20090225
  Transmission Date: 20090719
  Serious: Yes (Other)
  Sender: FDA-Public Use
  Company Number: 100#03#2009-00781

PATIENT
  Age: 15 Year
  Sex: Female

DRUGS (3)
  1. CITALOPRAM HYDROBROMIDE [Suspect]
     Indication: SUICIDE ATTEMPT
     Dosage: 60 MG/DAY (10 MG, 6 IN 1 DAY)
     Dates: start: 20090109
  2. LORAZEPAM [Suspect]
     Indication: SUICIDE ATTEMPT
     Dosage: 20 MG/DAY (1 MG, 20 IN 1 DAY)
  3. NOVOTHYRAL (LEVOTHYROXINE SODOIUM, LIOTHYRONINE SODIUM) [Concomitant]

REACTIONS (4)
  - DISORIENTATION [None]
  - ENURESIS [None]
  - FATIGUE [None]
  - SUICIDE ATTEMPT [None]
